FAERS Safety Report 5606592-9 (Version None)
Quarter: 2008Q1

REPORT INFORMATION
  Report Type: 
  Country: None (occurrence: None)
  Receive Date: 20080129
  Receipt Date: 20080123
  Transmission Date: 20080703
  Serious: Yes (Other)
  Sender: FDA-Public Use
  Company Number: BR-ASTRAZENECA-2008UW01735

PATIENT
  Age: 50 Year
  Sex: Female
  Weight: 60 kg

DRUGS (2)
  1. CRESTOR [Suspect]
     Indication: HYPERCHOLESTEROLAEMIA
     Route: 048
     Dates: start: 20080103, end: 20080122
  2. CLONAZEPAM [Concomitant]
     Dosage: 2.5 MG
     Route: 048
     Dates: start: 19980101

REACTIONS (4)
  - EYE SWELLING [None]
  - PRURITUS [None]
  - RASH [None]
  - SWELLING [None]
